FAERS Safety Report 12429214 (Version 1)
Quarter: 2016Q2

REPORT INFORMATION
  Report Type: Spontaneous
  Country: US (occurrence: None)
  Receive Date: 20160601
  Receipt Date: 20160601
  Transmission Date: 20160815
  Serious: No
  Sender: FDA-Public Use
  Company Number: None

PATIENT
  Age: 56 Year
  Sex: Female

DRUGS (3)
  1. LEUFLUNOMIDE [Concomitant]
     Active Substance: LEFLUNOMIDE
  2. ENBREL [Suspect]
     Active Substance: ETANERCEPT
     Indication: RHEUMATOID ARTHRITIS
     Route: 058
     Dates: start: 201505, end: 201601
  3. TRIAMCINOLON [Concomitant]

REACTIONS (2)
  - Rash [None]
  - Drug hypersensitivity [None]

NARRATIVE: CASE EVENT DATE: 201601
